FAERS Safety Report 9536217 (Version 1)
Quarter: 2013Q3

REPORT INFORMATION
  Report Type: Spontaneous
  Country: US (occurrence: None)
  Receive Date: 20130917
  Receipt Date: 20130917
  Transmission Date: 20140515
  Serious: No
  Sender: FDA-Public Use
  Company Number: None

PATIENT
  Age: 67 Year
  Sex: Female
  Weight: 175 kg

DRUGS (8)
  1. FENOFIBRAT [Suspect]
     Indication: BLOOD CHOLESTEROL INCREASED
     Route: 048
     Dates: start: 20120823, end: 20130617
  2. METFORMIN HCL -ER [Concomitant]
  3. MULTI VITAMIN [Concomitant]
  4. CALCIUM [Concomitant]
  5. B COMPLEX [Concomitant]
  6. POTASSIUM [Concomitant]
  7. MAGNESIUM [Concomitant]
  8. FISH OIL [Concomitant]

REACTIONS (4)
  - Constipation [None]
  - Haemorrhoids [None]
  - Flatulence [None]
  - Paraesthesia [None]
